FAERS Safety Report 10070998 (Version 1)
Quarter: 2014Q2

REPORT INFORMATION
  Report Type: Report from Study
  Country: CA (occurrence: CA)
  Receive Date: 20140410
  Receipt Date: 20140410
  Transmission Date: 20141212
  Serious: Yes (Other)
  Sender: FDA-Public Use
  Company Number: CA-BRISTOL-MYERS SQUIBB COMPANY-20588869

PATIENT
  Age: 65 Year
  Sex: Female

DRUGS (11)
  1. ORENCIA [Suspect]
     Indication: RHEUMATOID ARTHRITIS
     Dosage: 1DF=750 UNIT NOS.
     Dates: start: 20120614
  2. ATORVASTATIN [Concomitant]
  3. NOVORAPID [Concomitant]
  4. LANTUS [Concomitant]
  5. RAMIPRIL [Concomitant]
  6. METFORMIN [Concomitant]
  7. PREDNISONE [Concomitant]
  8. ELTROXIN [Concomitant]
  9. OXYCONTIN [Concomitant]
  10. TYLENOL WITH CODEINE [Concomitant]
  11. HYDROMORPHONE [Concomitant]

REACTIONS (2)
  - Nodule [Unknown]
  - Rheumatoid arthritis [Unknown]
